FAERS Safety Report 4907905-3 (Version None)
Quarter: 2006Q1

REPORT INFORMATION
  Report Type: 
  Country: None (occurrence: None)
  Receive Date: 20060210
  Receipt Date: 20040309
  Transmission Date: 20060701
  Serious: Yes (Life-Threatening, Hospitalization, Other)
  Sender: FDA-Public Use
  Company Number: 2004UW04501

PATIENT
  Age: 53 Year
  Sex: Female
  Weight: 73.2 kg

DRUGS (12)
  1. ESOMEPRAZOLE MAGNESIUM [Suspect]
     Route: 048
     Dates: start: 20040202, end: 20040209
  2. ESOMEPRAZOLE MAGNESIUM [Suspect]
     Route: 048
     Dates: start: 20040210
  3. VITAMIN B-12 [Concomitant]
     Indication: ANAEMIA
     Route: 030
     Dates: start: 20040219, end: 20040219
  4. FERROUS SULFATE TAB [Concomitant]
     Indication: ANAEMIA
     Route: 048
     Dates: start: 20040219
  5. GUAIFENESIN DM [Concomitant]
     Indication: COUGH
     Route: 048
     Dates: start: 20040219
  6. ATIVAN [Concomitant]
     Indication: ANXIETY
     Route: 042
     Dates: start: 20040306, end: 20040306
  7. ATIVAN [Concomitant]
     Route: 048
     Dates: start: 20040306, end: 20040306
  8. FENTANYL [Concomitant]
     Indication: ENDOSCOPY
     Route: 042
     Dates: start: 20040114, end: 20040114
  9. VERSED [Concomitant]
     Indication: ENDOSCOPY
     Route: 042
     Dates: start: 20040114, end: 20040114
  10. PROTONIX [Concomitant]
     Indication: GASTRINOMA
     Route: 048
     Dates: end: 20040201
  11. NORVASC [Concomitant]
     Indication: HYPERTENSION
     Route: 048
  12. FOLIC ACID [Concomitant]
     Route: 048

REACTIONS (7)
  - ALCOHOLISM [None]
  - ASTHENIA [None]
  - BLOOD MAGNESIUM DECREASED [None]
  - HYPOCALCAEMIA [None]
  - HYPOKALAEMIA [None]
  - HYPOMAGNESAEMIA [None]
  - TREATMENT NONCOMPLIANCE [None]
